FAERS Safety Report 8224831 (Version 2)
Quarter: 2013Q1

REPORT INFORMATION
  Report Type: Spontaneous
  Country: CA (occurrence: CA)
  Receive Date: 20111103
  Receipt Date: 20130308
  Transmission Date: 20140127
  Serious: Yes (Hospitalization)
  Sender: FDA-Public Use
  Company Number: CA-JNJFOC-20111012698

PATIENT
  Sex: Female
  Weight: 64 kg

DRUGS (1)
  1. REMICADE [Suspect]
     Indication: CROHN^S DISEASE
     Route: 042
     Dates: start: 20100518

REACTIONS (6)
  - Intestinal obstruction [Recovered/Resolved]
  - Gastrointestinal fistula [Unknown]
  - Pelvic abscess [Unknown]
  - Post procedural pneumonia [Unknown]
  - Postoperative wound infection [Unknown]
  - Anaemia postoperative [Recovered/Resolved]
